FAERS Safety Report 13973711 (Version 1)
Quarter: 2017Q3

REPORT INFORMATION
  Report Type: Spontaneous
  Country: RO (occurrence: RO)
  Receive Date: 20170914
  Receipt Date: 20170914
  Transmission Date: 20171128
  Serious: Yes (Hospitalization)
  Sender: FDA-Public Use
  Company Number: RO-ELI_LILLY_AND_COMPANY-RO201708010160

PATIENT
  Sex: Female

DRUGS (4)
  1. FORSTEO [Suspect]
     Active Substance: TERIPARATIDE
     Indication: PRODUCT USED FOR UNKNOWN INDICATION
     Dosage: UNK, UNKNOWN
     Route: 065
     Dates: start: 201705, end: 20170823
  2. THYROZOL [Concomitant]
     Active Substance: METHIMAZOLE
  3. SINTROM [Concomitant]
     Active Substance: ACENOCOUMAROL
  4. CORDARONE [Concomitant]
     Active Substance: AMIODARONE HYDROCHLORIDE

REACTIONS (3)
  - Dizziness [Unknown]
  - Vertigo CNS origin [Unknown]
  - Nausea [Unknown]

NARRATIVE: CASE EVENT DATE: 20170823
